FAERS Safety Report 5919650-6 (Version None)
Quarter: 2008Q4

REPORT INFORMATION
  Report Type: 
  Country: None (occurrence: None)
  Receive Date: 20081015
  Receipt Date: 20081010
  Transmission Date: 20090506
  Serious: Yes (Death)
  Sender: FDA-Public Use
  Company Number: US-ASTRAZENECA-2008UW22334

PATIENT
  Sex: Male

DRUGS (5)
  1. SEROQUEL [Suspect]
     Route: 048
  2. RISPERDAL [Concomitant]
  3. TRAZODONE HCL [Concomitant]
  4. PROZAC [Concomitant]
  5. ADDIR [Concomitant]

REACTIONS (1)
  - COMPLETED SUICIDE [None]
